FAERS Safety Report 15634256 (Version 1)
Quarter: 2018Q4

REPORT INFORMATION
  Report Type: Spontaneous
  Country: US (occurrence: US)
  Receive Date: 20181119
  Receipt Date: 20181119
  Transmission Date: 20190205
  Serious: Yes (Death)
  Sender: FDA-Public Use
  Company Number: US-PFIZER INC-2017411439

PATIENT
  Age: 82 Year
  Sex: Female
  Weight: 49.43 kg

DRUGS (2)
  1. IBRANCE [Suspect]
     Active Substance: PALBOCICLIB
     Indication: BREAST CANCER FEMALE
     Dosage: 100 MG, CYCLIC (TAKE FOR 3 WEEKS ON AND ONE WEEK OFF)
     Route: 048
     Dates: start: 20170920
  2. IBRANCE [Suspect]
     Active Substance: PALBOCICLIB
     Dosage: 75 MG, UNK
     Dates: end: 20181017

REACTIONS (1)
  - Death [Fatal]

NARRATIVE: CASE EVENT DATE: 20181017
